FAERS Safety Report 8839825 (Version 1)
Quarter: 2012Q4

REPORT INFORMATION
  Report Type: 
  Country: US (occurrence: US)
  Receive Date: 20121015
  Receipt Date: 20121015
  Transmission Date: 20130627
  Serious: No
  Sender: FDA-Public Use
  Company Number: US-BRISTOL-MYERS SQUIBB COMPANY-16387664

PATIENT
  Sex: Female

DRUGS (1)
  1. KENALOG-40 [Suspect]

REACTIONS (1)
  - Postmenopausal haemorrhage [Unknown]
